FAERS Safety Report 9791796 (Version 1)
Quarter: 2014Q1

REPORT INFORMATION
  Report Type: Spontaneous
  Country: IL (occurrence: IL)
  Receive Date: 20140102
  Receipt Date: 20140102
  Transmission Date: 20141002
  Serious: Yes (Death, Life-Threatening, Hospitalization)
  Sender: FDA-Public Use
  Company Number: IL-MPIJNJ-2013JNJ001496

PATIENT
  Sex: 0

DRUGS (7)
  1. VELCADE [Suspect]
     Indication: PRODUCT USED FOR UNKNOWN INDICATION
     Route: 065
  2. IBRUTINIB [Suspect]
     Indication: PRODUCT USED FOR UNKNOWN INDICATION
     Route: 048
  3. REVLIMID [Concomitant]
     Route: 065
  4. CYCLOPHOSPHAMIDE [Concomitant]
  5. DOXORUBICIN [Concomitant]
  6. VINCRISTINE [Concomitant]
  7. PREDNISOLONE [Concomitant]

REACTIONS (1)
  - Death [Fatal]
